FAERS Safety Report 13522768 (Version 1)
Quarter: 2017Q2

REPORT INFORMATION
  Report Type: Spontaneous
  Country: FR (occurrence: FR)
  Receive Date: 20170508
  Receipt Date: 20170508
  Transmission Date: 20170830
  Serious: Yes (Hospitalization)
  Sender: FDA-Public Use
  Company Number: FR-SA-2017SA079151

PATIENT
  Age: 59 Year
  Sex: Male

DRUGS (4)
  1. LOVENOX [Suspect]
     Active Substance: ENOXAPARIN SODIUM
     Indication: ATRIAL FIBRILLATION
     Dosage: INJECTABLE SOLUTION (SC) IN PRE-FILLED SYRINGE
     Route: 058
     Dates: start: 20170225
  2. KARDEGIC [Concomitant]
     Active Substance: ASPIRIN LYSINE
     Indication: ATRIAL FIBRILLATION
     Dosage: POWDER FOR ORAL SOLUTION IN DOSE SACHET
     Route: 048
  3. PREVISCAN [Suspect]
     Active Substance: FLUINDIONE
     Indication: ATRIAL FIBRILLATION
     Dosage: DIVISIBLE TABLET
     Route: 048
     Dates: end: 20170329
  4. INSPRA [Concomitant]
     Active Substance: EPLERENONE
     Route: 048

REACTIONS (2)
  - Urinary retention [Recovered/Resolved]
  - Red blood cells urine positive [Recovered/Resolved]

NARRATIVE: CASE EVENT DATE: 20170330
